FAERS Safety Report 23187883 (Version 1)
Quarter: 2023Q4

REPORT INFORMATION
  Report Type: Spontaneous
  Country: US (occurrence: US)
  Receive Date: 20231115
  Receipt Date: 20231115
  Transmission Date: 20240110
  Serious: No
  Sender: FDA-Public Use
  Company Number: US-HERON THERAPEUTICS, INC-HRTX-2023-000942

PATIENT
  Sex: Female

DRUGS (4)
  1. CINVANTI [Suspect]
     Active Substance: APREPITANT
     Indication: Prophylaxis of nausea and vomiting
     Dosage: UNK
     Route: 065
     Dates: start: 2022
  2. OXALIPLATIN [Concomitant]
     Active Substance: OXALIPLATIN
     Indication: Chemotherapy
  3. DEXAMETHASONE [Concomitant]
     Active Substance: DEXAMETHASONE
     Indication: Premedication
  4. ALOXI [Concomitant]
     Active Substance: PALONOSETRON HYDROCHLORIDE
     Indication: Premedication

REACTIONS (6)
  - Vulvovaginal discomfort [Unknown]
  - Genital lesion [Recovered/Resolved]
  - Gastrointestinal pain [Unknown]
  - Urticaria [Recovered/Resolved]
  - Cold sweat [Recovered/Resolved]
  - Compensatory sweating [Recovered/Resolved]
